FAERS Safety Report 25728754 (Version 1)
Quarter: 2025Q3

REPORT INFORMATION
  Report Type: Spontaneous
  Country: US (occurrence: US)
  Receive Date: 20250826
  Receipt Date: 20250826
  Transmission Date: 20251020
  Serious: No
  Sender: BIOMARIN
  Company Number: US-BIOMARINAP-US-2025-168162

PATIENT
  Sex: Male

DRUGS (1)
  1. ROCTAVIAN [Suspect]
     Active Substance: VALOCTOCOGENE ROXAPARVOVEC-RVOX
     Indication: Product used for unknown indication

REACTIONS (2)
  - Factor VIII activity decreased [Recovered/Resolved]
  - Alanine aminotransferase increased [Not Recovered/Not Resolved]
